FAERS Safety Report 6734122-7 (Version None)
Quarter: 2010Q2

REPORT INFORMATION
  Report Type: 
  Country: None (occurrence: None)
  Receive Date: 20100520
  Receipt Date: 20100511
  Transmission Date: 20101027
  Serious: Yes (Other)
  Sender: FDA-Public Use
  Company Number: US-PFIZER INC-2010059998

PATIENT
  Sex: Male
  Weight: 95 kg

DRUGS (2)
  1. XALATAN [Suspect]
     Indication: GLAUCOMA
     Dosage: UNK
     Route: 047
  2. TOPROL-XL [Concomitant]
     Indication: HYPERTENSION
     Dosage: 25 MG, UNK

REACTIONS (4)
  - BLOOD CREATININE INCREASED [None]
  - DRY EYE [None]
  - EYE DISORDER [None]
  - VISION BLURRED [None]
